FAERS Safety Report 9188296 (Version 1)
Quarter: 2013Q1

REPORT INFORMATION
  Report Type: Spontaneous
  Country: US (occurrence: US)
  Receive Date: 20130325
  Receipt Date: 20130325
  Transmission Date: 20140127
  Serious: No
  Sender: FDA-Public Use
  Company Number: US-BAYER-2013-032574

PATIENT
  Sex: Female

DRUGS (6)
  1. BETASERON [Suspect]
     Dosage: 0.25 MG, QOD
     Route: 058
  2. ENABLEX [Concomitant]
  3. CALCIUM [Concomitant]
  4. LEVOXYL [Concomitant]
     Dosage: 88 ?G, UNK
  5. VITAMIN D3 [Concomitant]
     Dosage: 2000 U, UNK
  6. MULTIVITAMIN [Concomitant]

REACTIONS (5)
  - Peripheral vascular disorder [Unknown]
  - Rash macular [Unknown]
  - Injection site pain [Unknown]
  - Fatigue [Unknown]
  - Feeling abnormal [Unknown]
